FAERS Safety Report 13288020 (Version 2)
Quarter: 2017Q1

REPORT INFORMATION
  Report Type: Report from Study
  Country: US (occurrence: US)
  Receive Date: 20170302
  Receipt Date: 20170329
  Transmission Date: 20170428
  Serious: Yes (Hospitalization)
  Sender: FDA-Public Use
  Company Number: US-ROCHE-1884791

PATIENT
  Age: 67 Year
  Sex: Female
  Weight: 94.1 kg

DRUGS (16)
  1. AZACITIDINE. [Suspect]
     Active Substance: AZACITIDINE
     Indication: MYELODYSPLASTIC SYNDROME
     Dosage: MOST RECENT DOSE PRIOR TO THE EVENT ADMINISTERED ON 03/JAN/2017 STARTING AT 15:57
     Route: 058
     Dates: start: 20161228
  2. LASIX [Concomitant]
     Active Substance: FUROSEMIDE
     Indication: OEDEMA
     Route: 065
     Dates: start: 201411
  3. MS CONTIN [Concomitant]
     Active Substance: MORPHINE SULFATE
     Indication: OSTEOARTHRITIS
     Route: 065
     Dates: start: 2012
  4. ATEZOLIZUMAB [Suspect]
     Active Substance: ATEZOLIZUMAB
     Indication: MYELODYSPLASTIC SYNDROME
     Dosage: MOST RECENT DOSE PRIOR TO THE EVENT ADMINISTERED ON 18/JAN/2017 STARTING AT 15:06
     Route: 042
     Dates: start: 20170104
  5. VITAMIN B12 [Concomitant]
     Active Substance: CYANOCOBALAMIN
     Route: 065
     Dates: start: 201605
  6. KCL [Concomitant]
     Active Substance: POTASSIUM CHLORIDE
     Indication: FEBRILE NEUTROPENIA
     Route: 048
     Dates: start: 20170127, end: 20170127
  7. TYLENOL [Concomitant]
     Active Substance: ACETAMINOPHEN
     Indication: HEADACHE
     Route: 065
     Dates: start: 20170124
  8. CYMBALTA [Concomitant]
     Active Substance: DULOXETINE HYDROCHLORIDE
     Indication: NEUROPATHY PERIPHERAL
     Route: 065
     Dates: start: 201604
  9. ZOFRAN [Concomitant]
     Active Substance: ONDANSETRON HYDROCHLORIDE
     Indication: VOMITING
     Route: 065
     Dates: start: 20161228
  10. JADENU [Concomitant]
     Active Substance: DEFERASIROX
     Indication: IRON OVERLOAD
     Route: 065
     Dates: start: 201511
  11. ZOFRAN [Concomitant]
     Active Substance: ONDANSETRON HYDROCHLORIDE
     Indication: NAUSEA
  12. BENADRYL [Concomitant]
     Active Substance: DIPHENHYDRAMINE HYDROCHLORIDE
     Indication: INJECTION SITE REACTION
     Route: 065
     Dates: start: 20161231
  13. HYDROCORTISONE CREME [Concomitant]
     Indication: INJECTION SITE REACTION
     Route: 065
     Dates: start: 20161231
  14. LASIX [Concomitant]
     Active Substance: FUROSEMIDE
     Route: 048
  15. LEVOXYL [Concomitant]
     Active Substance: LEVOTHYROXINE SODIUM
     Indication: HYPOTHYROIDISM
     Route: 065
     Dates: start: 2006
  16. GABAPENTIN. [Concomitant]
     Active Substance: GABAPENTIN
     Indication: NEUROPATHY PERIPHERAL

REACTIONS (1)
  - Pneumonia viral [Recovered/Resolved]

NARRATIVE: CASE EVENT DATE: 20170123
